FAERS Safety Report 5417293-4 (Version None)
Quarter: 2007Q3

REPORT INFORMATION
  Report Type: 
  Country: None (occurrence: None)
  Receive Date: 20070816
  Receipt Date: 20070806
  Transmission Date: 20080115
  Serious: Yes (Hospitalization)
  Sender: FDA-Public Use
  Company Number: US-SANOFI-SYNTHELABO-F03200600131

PATIENT
  Age: 48 Year
  Sex: Female

DRUGS (9)
  1. OXALIPLATIN [Suspect]
     Route: 042
     Dates: start: 20060522, end: 20060522
  2. BENTYL [Concomitant]
     Route: 048
     Dates: start: 20060105
  3. BEVACIZUMAB [Suspect]
     Route: 042
     Dates: start: 20060213, end: 20060213
  4. S-1 [Suspect]
     Dosage: 30 MG TWICE DAILY FOR 14 DAYS
     Route: 048
     Dates: end: 20060523
  5. ATROVENT [Concomitant]
     Dosage: UNK
     Route: 055
  6. XANAX [Concomitant]
     Route: 048
  7. LOVENOX [Concomitant]
     Route: 058
  8. CALTRATE [Concomitant]
     Route: 065
  9. PROTONIX [Concomitant]
     Route: 048

REACTIONS (1)
  - CHOLECYSTITIS [None]
